FAERS Safety Report 17428003 (Version 2)
Quarter: 2022Q2

REPORT INFORMATION
  Report Type: Spontaneous
  Country: US (occurrence: US)
  Receive Date: 20200218
  Receipt Date: 20220609
  Transmission Date: 20220720
  Serious: Yes (Hospitalization, Disabling)
  Sender: FDA-Public Use
  Company Number: US-TEVA-2020-US-1186888

PATIENT
  Age: 50 Year
  Sex: Female
  Weight: 113.40 kg

DRUGS (4)
  1. DOCETAXEL [Suspect]
     Active Substance: DOCETAXEL
     Indication: Breast cancer female
     Dosage: EVERY 3 WEEKS; 145 MILLIGRAMS
     Route: 065
     Dates: start: 20180124, end: 20180412
  2. DOCETAXEL [Suspect]
     Active Substance: DOCETAXEL
     Indication: Breast cancer female
     Dosage: EVERY 3 WEEKS; 145 MILLIGRAMS
     Route: 065
     Dates: start: 20180124, end: 20180412
  3. CYCLOPHOSPHAMIDE [Concomitant]
     Active Substance: CYCLOPHOSPHAMIDE
     Indication: Breast cancer female
     Dosage: EVERY 3 WEEKS; 1260 MG
     Route: 065
     Dates: start: 20180124, end: 20180412
  4. TAMOXIFEN [Concomitant]
     Active Substance: TAMOXIFEN
     Dates: start: 2018

REACTIONS (6)
  - Sepsis [Unknown]
  - Pyrexia [Unknown]
  - Alopecia areata [Unknown]
  - Alopecia totalis [Unknown]
  - Hair colour changes [Unknown]
  - Hair texture abnormal [Unknown]
